FAERS Safety Report 17492539 (Version 1)
Quarter: 2020Q1

REPORT INFORMATION
  Report Type: Spontaneous
  Country: CN (occurrence: CN)
  Receive Date: 20200304
  Receipt Date: 20200304
  Transmission Date: 20200409
  Serious: Yes (Other)
  Sender: FDA-Public Use
  Company Number: CN-JNJFOC-20200300209

PATIENT
  Age: 81 Year
  Sex: Male
  Weight: 57 kg

DRUGS (15)
  1. FEBUXOSTAT. [Concomitant]
     Active Substance: FEBUXOSTAT
     Indication: HYPERURICAEMIA
     Dosage: 40 MILLIGRAM, ONCE DAILY (QD)
     Route: 048
     Dates: start: 20200207, end: 20200220
  2. CEFTIZOXIME [Concomitant]
     Active Substance: CEFTIZOXIME
     Indication: PRODUCT USED FOR UNKNOWN INDICATION
     Route: 065
  3. ENOXAPARIN SODIUM. [Concomitant]
     Active Substance: ENOXAPARIN SODIUM
     Indication: THROMBOSIS
     Dosage: 4000 INTERNATIONAL UNIT, ONCE DAILY (QD)
     Route: 058
  4. SODIUM CHLORIDE. [Concomitant]
     Active Substance: SODIUM CHLORIDE
     Indication: PRODUCT USED FOR UNKNOWN INDICATION
     Dosage: 100 MILLILITER, 2X/DAY (BID)
     Route: 041
     Dates: start: 20200207, end: 20200210
  5. RABEPRAZOLE SODIUM. [Concomitant]
     Active Substance: RABEPRAZOLE SODIUM
     Indication: HYPERCHLORHYDRIA
     Dosage: 20 MILLIGRAM, ONCE DAILY (QD)
     Route: 041
     Dates: start: 20200207, end: 20200220
  6. MOXIFLOXACIN HYDROCHLORIDE. [Concomitant]
     Active Substance: MOXIFLOXACIN HYDROCHLORIDE
     Indication: PNEUMONIA
     Dosage: 0.4 GRAM, ONCE DAILY (QD)
     Route: 041
     Dates: start: 20200210, end: 20200220
  7. OFLOXACIN. [Concomitant]
     Active Substance: OFLOXACIN
     Indication: PNEUMONIA
     Dosage: 0.4 GRAM, ONCE DAILY (QD)
     Route: 041
     Dates: start: 20200207, end: 20200210
  8. SULPERAZON [Suspect]
     Active Substance: CEFOPERAZONE SODIUM\SULBACTAM SODIUM
     Indication: PNEUMONIA
     Dosage: 3 GRAM, 2X/DAY (BID)
     Route: 041
     Dates: start: 20200210, end: 20200217
  9. EPOCELIN [Concomitant]
     Active Substance: CEFTIZOXIME SODIUM
     Indication: PNEUMONIA
     Dosage: 2 GRAM, 2X/DAY (BID)
     Route: 041
     Dates: start: 20200207, end: 20200210
  10. ZYRTEC [Suspect]
     Active Substance: CETIRIZINE HYDROCHLORIDE
     Indication: URTICARIA CHRONIC
     Dosage: UNK
     Route: 065
  11. LOSARTAN POTASSIUM. [Concomitant]
     Active Substance: LOSARTAN POTASSIUM
     Indication: HYPERTENSION
     Dosage: 100 MILLILITER, UNK
     Route: 048
     Dates: start: 20200207, end: 20200220
  12. PREDNISONE. [Concomitant]
     Active Substance: PREDNISONE
     Indication: URTICARIA CHRONIC
     Route: 065
  13. TRAJENTA [Concomitant]
     Active Substance: LINAGLIPTIN
     Indication: DIABETES MELLITUS
     Dosage: 5 MILLIGRAM, UNK
     Route: 048
     Dates: start: 20200207, end: 20200220
  14. PITAVASTATIN CALCIUM [Concomitant]
     Active Substance: PITAVASTATIN CALCIUM
     Indication: CAROTID ARTERIOSCLEROSIS
     Dosage: 2 MILLIGRAM, ONCE DAILY (QD)
     Route: 048
     Dates: start: 20200207, end: 20200220
  15. GLUCOBAY [Concomitant]
     Active Substance: ACARBOSE
     Indication: DIABETES MELLITUS
     Dosage: 100 MILLIGRAM, 3X/DAY (TID)
     Route: 048
     Dates: start: 20200207, end: 20200220

REACTIONS (1)
  - Coagulation time prolonged [Recovered/Resolved]

NARRATIVE: CASE EVENT DATE: 20200217
